FAERS Safety Report 16544826 (Version 1)
Quarter: 2019Q3

REPORT INFORMATION
  Report Type: Spontaneous
  Country: US (occurrence: US)
  Receive Date: 20190528
  Receipt Date: 20190528
  Transmission Date: 20191004
  Serious: Yes (Other)
  Sender: FDA-Public Use
  Company Number: None

PATIENT
  Sex: Female

DRUGS (5)
  1. MONTELUKAST [Concomitant]
     Active Substance: MONTELUKAST SODIUM
  2. RANITIDINE. [Concomitant]
     Active Substance: RANITIDINE
  3. CYCLOBENZAPR [Concomitant]
     Active Substance: CYCLOBENZAPRINE
  4. LORAZEPAM. [Concomitant]
     Active Substance: LORAZEPAM
  5. LUPRON DEPOT [Suspect]
     Active Substance: LEUPROLIDE ACETATE
     Indication: TRANS-SEXUALISM
     Dosage: ?          OTHER FREQUENCY:EVERY THREE MONTHS;?
     Route: 030
     Dates: start: 20180925

REACTIONS (1)
  - Hysterectomy [None]
